FAERS Safety Report 21915909 (Version 1)
Quarter: 2023Q1

REPORT INFORMATION
  Report Type: Spontaneous
  Country: US (occurrence: None)
  Receive Date: 20230125
  Receipt Date: 20230125
  Transmission Date: 20230418
  Serious: No
  Sender: FDA-Public Use
  Company Number: None

PATIENT
  Age: 47 Year
  Sex: Male

DRUGS (6)
  1. HUMIRA [Suspect]
     Active Substance: ADALIMUMAB
     Indication: Hidradenitis
     Dosage: OTHER FREQUENCY : EVERY 14 DAYS;?
     Route: 058
     Dates: start: 20221222
  2. DOXYCYCLINE HYCLATE [Concomitant]
     Active Substance: DOXYCYCLINE HYCLATE
  3. VALSARTAN [Concomitant]
     Active Substance: VALSARTAN
  4. IBUPROFEN [Concomitant]
     Active Substance: IBUPROFEN
  5. BENZONATATE [Concomitant]
     Active Substance: BENZONATATE
  6. Tonalin [Concomitant]

REACTIONS (6)
  - Headache [None]
  - Decreased appetite [None]
  - Temperature intolerance [None]
  - Poor quality sleep [None]
  - Nightmare [None]
  - Melanocytic naevus [None]
